FAERS Safety Report 4537632-6 (Version None)
Quarter: 2004Q4

REPORT INFORMATION
  Report Type: 
  Country: None (occurrence: None)
  Receive Date: 20041216
  Receipt Date: 20040630
  Transmission Date: 20050328
  Serious: Yes (Hospitalization, Other)
  Sender: FDA-Public Use
  Company Number: 2004216596US

PATIENT
  Sex: Female
  Weight: 65.8 kg

DRUGS (2)
  1. ARTHROTEC [Suspect]
     Indication: ARTHRITIS
  2. VIOXX [Concomitant]

REACTIONS (2)
  - DISEASE RECURRENCE [None]
  - GASTRIC ULCER HAEMORRHAGE [None]
